FAERS Safety Report 9369644 (Version 1)
Quarter: 2013Q2

REPORT INFORMATION
  Report Type: Spontaneous
  Country: US (occurrence: None)
  Receive Date: 20130621
  Receipt Date: 20130621
  Transmission Date: 20140414
  Serious: Yes (Other)
  Sender: FDA-Public Use
  Company Number: KAD201306-000723

PATIENT
  Age: 65 Year
  Sex: Male

DRUGS (7)
  1. AMPHOTERICIN B [Suspect]
     Indication: ZYGOMYCOSIS
  2. POSACONAZOLE [Suspect]
  3. INSULIN (INSULIN) [Concomitant]
  4. MOXIFLOXACIN (MOXIFLOXACIN) [Concomitant]
  5. LINEZOLID (LINEZOLID) [Concomitant]
  6. PREDNISONE [Concomitant]
  7. TOBRAMYCIN (TOBRAMYCIN) [Concomitant]

REACTIONS (3)
  - Pneumonia necrotising [None]
  - Pneumothorax [None]
  - Bronchopleural fistula [None]
